FAERS Safety Report 6671591-5 (Version None)
Quarter: 2010Q2

REPORT INFORMATION
  Report Type: 
  Country: None (occurrence: None)
  Receive Date: 20100407
  Receipt Date: 20100326
  Transmission Date: 20101027
  Serious: Yes (Other)
  Sender: FDA-Public Use
  Company Number: JP-PFIZER INC-2010042698

PATIENT

DRUGS (1)
  1. SALAZOPYRIN [Suspect]
     Dosage: UNK ONCE DAILY AT BEDTIME
     Route: 054

REACTIONS (2)
  - FAECES DISCOLOURED [None]
  - MEDICATION RESIDUE [None]
